FAERS Safety Report 8850713 (Version 2)
Quarter: 2015Q2

REPORT INFORMATION
  Report Type: Report from Study
  Country: US (occurrence: US)
  Receive Date: 20121019
  Receipt Date: 20150615
  Transmission Date: 20150821
  Serious: Yes (Death)
  Sender: FDA-Public Use
  Company Number: US-ROCHE-1132380

PATIENT
  Sex: Male

DRUGS (18)
  1. XELODA [Suspect]
     Active Substance: CAPECITABINE
     Indication: COLON CANCER
     Route: 048
     Dates: start: 20091012, end: 20100329
  2. LEUCOVORIN [Concomitant]
     Active Substance: LEUCOVORIN
     Route: 042
  3. LEUCOVORIN [Concomitant]
     Active Substance: LEUCOVORIN
     Route: 042
  4. DECADRON [Concomitant]
     Active Substance: DEXAMETHASONE
     Route: 042
  5. AVASTIN [Suspect]
     Active Substance: BEVACIZUMAB
     Indication: COLON CANCER
     Route: 042
     Dates: start: 20070521
  6. AVASTIN [Suspect]
     Active Substance: BEVACIZUMAB
     Route: 042
  7. FLUOROURACIL. [Concomitant]
     Active Substance: FLUOROURACIL
     Route: 042
  8. FLUOROURACIL. [Concomitant]
     Active Substance: FLUOROURACIL
     Route: 042
  9. MAG [Concomitant]
     Route: 065
  10. GRANISETRON [Concomitant]
     Active Substance: GRANISETRON
     Route: 042
  11. OXALIPLATIN. [Concomitant]
     Active Substance: OXALIPLATIN
     Route: 042
  12. FLUOROURACIL. [Concomitant]
     Active Substance: FLUOROURACIL
     Route: 042
  13. LORAZEPAM. [Concomitant]
     Active Substance: LORAZEPAM
  14. ROXANOL [Concomitant]
     Active Substance: MORPHINE SULFATE
  15. VICODIN [Concomitant]
     Active Substance: ACETAMINOPHEN\HYDROCODONE BITARTRATE
  16. XELODA [Suspect]
     Active Substance: CAPECITABINE
     Dosage: (500MG 2 PO) BID FOR 14 DAYS EVERY 3 WEEKS
     Route: 048
  17. CONSTULOSE [Concomitant]
     Active Substance: LACTULOSE
  18. FLUOROURACIL. [Concomitant]
     Active Substance: FLUOROURACIL
     Route: 042

REACTIONS (8)
  - Disease progression [Unknown]
  - Insomnia [Unknown]
  - Proctalgia [Unknown]
  - Death [Fatal]
  - Abdominal pain [Unknown]
  - Stomatitis [Unknown]
  - Oral pain [Unknown]
  - Fatigue [Unknown]
